FAERS Safety Report 25655230 (Version 1)
Quarter: 2025Q3

REPORT INFORMATION
  Report Type: Spontaneous
  Country: US (occurrence: None)
  Receive Date: 20250806
  Receipt Date: 20250806
  Transmission Date: 20251021
  Serious: Yes (Hospitalization, Other)
  Sender: FDA-CTU
  Company Number: None

PATIENT
  Age: 67 Year
  Sex: Female
  Weight: 95.4 kg

DRUGS (11)
  1. REPATHA [Suspect]
     Active Substance: EVOLOCUMAB
     Indication: Low density lipoprotein increased
     Route: 050
     Dates: start: 20250520, end: 20250713
  2. LEVOTHYROXINE [Concomitant]
     Active Substance: LEVOTHYROXINE
  3. LIOTHYRONINE [Concomitant]
     Active Substance: LIOTHYRONINE
  4. ZETIA [Concomitant]
     Active Substance: EZETIMIBE
  5. OMEPRAZOLE [Concomitant]
     Active Substance: OMEPRAZOLE
  6. GABAPENTIN [Concomitant]
     Active Substance: GABAPENTIN
  7. LEXAPRO [Concomitant]
     Active Substance: ESCITALOPRAM OXALATE
  8. Citrucel + D3 [Concomitant]
  9. MELATONIN [Concomitant]
     Active Substance: MELATONIN
  10. 5HTP [Concomitant]
  11. DIPHENHYDRAMINE [Concomitant]
     Active Substance: DIPHENHYDRAMINE

REACTIONS (5)
  - Influenza like illness [None]
  - Pain in extremity [None]
  - Arthralgia [None]
  - Contusion [None]
  - Pancreatitis [None]

NARRATIVE: CASE EVENT DATE: 20250713
